FAERS Safety Report 24316782 (Version 4)
Quarter: 2025Q1

REPORT INFORMATION
  Report Type: Report from Study
  Country: ES (occurrence: ES)
  Receive Date: 20240913
  Receipt Date: 20250327
  Transmission Date: 20250409
  Serious: Yes (Other)
  Sender: TAKEDA
  Company Number: ES-TAKEDA-2024TUS090620

PATIENT
  Age: 18 Year
  Sex: Male

DRUGS (7)
  1. TEDUGLUTIDE [Suspect]
     Active Substance: TEDUGLUTIDE
     Indication: Short-bowel syndrome
     Dosage: 3 MILLIGRAM, QD
     Dates: start: 20230324
  2. TEDUGLUTIDE [Suspect]
     Active Substance: TEDUGLUTIDE
  3. TEDUGLUTIDE [Suspect]
     Active Substance: TEDUGLUTIDE
  4. TEDUGLUTIDE [Suspect]
     Active Substance: TEDUGLUTIDE
  5. CALCIFEDIOL [Concomitant]
     Active Substance: CALCIFEDIOL
     Indication: Vitamin D deficiency
     Dosage: 0.26 MILLIGRAM, Q2WEEKS
     Dates: start: 20230317, end: 20231020
  6. CALCIFEDIOL [Concomitant]
     Active Substance: CALCIFEDIOL
     Dosage: 0.26 MILLIGRAM, Q2WEEKS
     Dates: start: 20231020
  7. GENTAMICIN [Concomitant]
     Active Substance: GENTAMICIN
     Indication: Vascular device infection
     Dosage: UNK GTT DROPS, BID
     Route: 061
     Dates: start: 20240419, end: 20240426

REACTIONS (6)
  - Hyperbilirubinaemia [Recovered/Resolved]
  - Iron deficiency [Recovered/Resolved]
  - High density lipoprotein decreased [Not Recovered/Not Resolved]
  - Hypomagnesaemia [Recovered/Resolved]
  - Device breakage [Recovered/Resolved]
  - Device related infection [Recovered/Resolved]

NARRATIVE: CASE EVENT DATE: 20240724
